FAERS Safety Report 10735466 (Version 2)
Quarter: 2015Q2

REPORT INFORMATION
  Report Type: Spontaneous
  Country: IT (occurrence: IT)
  Receive Date: 20150126
  Receipt Date: 20150417
  Transmission Date: 20150821
  Serious: Yes (Hospitalization)
  Sender: FDA-Public Use
  Company Number: IT-ROCHE-1449812

PATIENT
  Age: 3 Year
  Sex: Male

DRUGS (8)
  1. SABRIL [Suspect]
     Active Substance: VIGABATRIN
     Dosage: 500 MG MODIFIED-RELEASE GRANULES^ 30 PACKETS
     Route: 048
     Dates: start: 20140415
  2. SABRIL [Suspect]
     Active Substance: VIGABATRIN
     Dosage: 500 MG GRANULES FOR ORAL SOLUTION
     Route: 048
     Dates: start: 20141120, end: 20141201
  3. RIVOTRIL [Suspect]
     Active Substance: CLONAZEPAM
     Indication: PARTIAL SEIZURES
     Dosage: 2.5MG/ML ORAL DROPS , SOLUTION^ 10ML BOTTLE
     Route: 048
     Dates: start: 20140301, end: 20140526
  4. DEPAKIN [Suspect]
     Active Substance: VALPROATE SODIUM
     Indication: PARTIAL SEIZURES
     Dosage: CHRONO 500 MG PROLONGED RELEASE TABLETS 30 TABLETS
     Route: 048
     Dates: start: 20141120, end: 20141201
  5. DEPAKIN [Suspect]
     Active Substance: VALPROATE SODIUM
     Dosage: ^500 MG MODIFIED-RELEASE GRANULES^
     Route: 048
     Dates: start: 20140515, end: 20141201
  6. RIVOTRIL [Suspect]
     Active Substance: CLONAZEPAM
     Dosage: ^2.5 MG/ML ORAL DROPS, SOLUTION^
     Route: 048
     Dates: start: 20140515, end: 20141201
  7. SABRIL [Suspect]
     Active Substance: VIGABATRIN
     Indication: PARTIAL SEIZURES
     Dosage: 50 COATED TABLETS 500 MG
     Route: 048
     Dates: start: 20140301, end: 20140526
  8. DEPAKIN [Suspect]
     Active Substance: VALPROATE SODIUM
     Dosage: CHRONO 500 MG PROLONGED RELEASE TABLETS 30 TABLETS
     Route: 048
     Dates: start: 20140301, end: 20140526

REACTIONS (4)
  - Partial seizures [Recovering/Resolving]
  - Muscle rigidity [Recovered/Resolved]
  - Drug ineffective [Unknown]
  - Tremor [Recovered/Resolved]

NARRATIVE: CASE EVENT DATE: 20140526
